FAERS Safety Report 21135025 (Version 1)
Quarter: 2022Q3

REPORT INFORMATION
  Report Type: Spontaneous
  Country: US (occurrence: US)
  Receive Date: 20220727
  Receipt Date: 20220727
  Transmission Date: 20221027
  Serious: Yes (Other)
  Sender: FDA-Public Use
  Company Number: US-OCTA-LIT02522US

PATIENT
  Age: 33 Year
  Sex: Female

DRUGS (2)
  1. HUMAN RED BLOOD CELL [Concomitant]
     Active Substance: HUMAN RED BLOOD CELL
     Indication: Anaemia
  2. HUMAN IMMUNOGLOBULIN G [Suspect]
     Active Substance: HUMAN IMMUNOGLOBULIN G
     Indication: Prophylaxis
     Route: 042

REACTIONS (2)
  - Pancytopenia [Recovered/Resolved]
  - Maternal exposure during pregnancy [Unknown]
